FAERS Safety Report 8226144-4 (Version None)
Quarter: 2012Q1

REPORT INFORMATION
  Report Type: 
  Country: None (occurrence: None)
  Receive Date: 20120319
  Receipt Date: 20120301
  Transmission Date: 20120608
  Serious: Yes (Other)
  Sender: FDA-Public Use
  Company Number: ENTC2012-0094

PATIENT
  Age: 92 Year
  Sex: Female

DRUGS (7)
  1. STALEVO 100 [Suspect]
     Indication: PARKINSON'S DISEASE
     Dosage: HALF TABLET (100/25/200 MG) DAILY, UNKNOWN
     Dates: start: 20101001
  2. ASPIRIN [Concomitant]
  3. LEVOTHYROXINE SODIUM [Concomitant]
  4. QUETIAPINE [Concomitant]
  5. PROTALGINE [Concomitant]
  6. BICONCORD [Concomitant]
  7. AKATINOL [Concomitant]

REACTIONS (7)
  - BRADYKINESIA [None]
  - WRONG TECHNIQUE IN DRUG USAGE PROCESS [None]
  - PUBIS FRACTURE [None]
  - HALLUCINATION, VISUAL [None]
  - DELUSION [None]
  - DEMENTIA [None]
  - WEIGHT DECREASED [None]
